FAERS Safety Report 15000202 (Version 1)
Quarter: 2018Q2

REPORT INFORMATION
  Report Type: Spontaneous
  Country: BR (occurrence: BR)
  Receive Date: 20180612
  Receipt Date: 20180612
  Transmission Date: 20180711
  Serious: Yes (Other)
  Sender: FDA-Public Use
  Company Number: BR-TORRENT-00004449

PATIENT
  Age: 31 Year
  Sex: Female
  Weight: 50 kg

DRUGS (3)
  1. RISPERIDONE. [Suspect]
     Active Substance: RISPERIDONE
     Indication: DELIRIUM
     Dosage: 4 TABLETS DAILY/ORAL
     Route: 048
     Dates: start: 2013
  2. SERENATA [Suspect]
     Active Substance: SERTRALINE HYDROCHLORIDE
     Indication: DEPRESSION
     Dosage: 3 TABLET DAILY
     Route: 048
     Dates: start: 2013
  3. OLANZAPINE. [Suspect]
     Active Substance: OLANZAPINE
     Indication: DELIRIUM
     Dosage: 10 MG ONE TABLET DAILY
     Dates: start: 20180515

REACTIONS (5)
  - Visual impairment [Not Recovered/Not Resolved]
  - Delirium [Not Recovered/Not Resolved]
  - Hallucination [Not Recovered/Not Resolved]
  - Fear [Not Recovered/Not Resolved]
  - Therapeutic response decreased [Unknown]

NARRATIVE: CASE EVENT DATE: 2013
